FAERS Safety Report 10104480 (Version 2)
Quarter: 2014Q2

REPORT INFORMATION
  Report Type: Other
  Country: US (occurrence: US)
  Receive Date: 20140424
  Receipt Date: 20140619
  Transmission Date: 20141212
  Serious: Yes (Hospitalization, Other)
  Sender: FDA-Public Use
  Company Number: US-GSKPPD-2014GSK001963

PATIENT
  Age: 65 Year
  Sex: 0

DRUGS (5)
  1. AVANDIA [Suspect]
     Indication: DIABETES MELLITUS
     Route: 048
     Dates: start: 200203, end: 200604
  2. AVANDAMET [Suspect]
     Indication: DIABETES MELLITUS
     Dosage: 4/1000MG
     Dates: start: 200709, end: 201001
  3. AVANDARYL [Suspect]
     Indication: DIABETES MELLITUS
     Dosage: 4-2MG
     Dates: start: 200604, end: 200703
  4. PLAVIX [Concomitant]
  5. ASPIRIN [Concomitant]

REACTIONS (2)
  - Myocardial infarction [None]
  - Chest discomfort [Recovered/Resolved]
